FAERS Safety Report 25637914 (Version 1)
Quarter: 2025Q3

REPORT INFORMATION
  Report Type: Spontaneous
  Country: US (occurrence: US)
  Receive Date: 20250804
  Receipt Date: 20250804
  Transmission Date: 20251021
  Serious: Yes (Life-Threatening)
  Sender: Steriscience PTE
  Company Number: US-STERISCIENCE B.V.-2025-ST-001373

PATIENT
  Age: 90 Year
  Sex: Female
  Weight: 45 kg

DRUGS (9)
  1. SUCCINYLCHOLINE CHLORIDE [Suspect]
     Active Substance: SUCCINYLCHOLINE CHLORIDE
     Indication: Induction of anaesthesia
     Route: 065
  2. ELIQUIS [Concomitant]
     Active Substance: APIXABAN
     Indication: Product used for unknown indication
     Route: 065
  3. AMLODIPINE [Concomitant]
     Active Substance: AMLODIPINE BESYLATE
     Indication: Product used for unknown indication
     Route: 065
  4. METOPROLOL [Concomitant]
     Active Substance: METOPROLOL
     Indication: Product used for unknown indication
     Route: 065
  5. PROPOFOL [Concomitant]
     Active Substance: PROPOFOL
     Indication: Induction of anaesthesia
     Route: 065
  6. PROPOFOL [Concomitant]
     Active Substance: PROPOFOL
     Route: 065
  7. FENTANYL [Concomitant]
     Active Substance: FENTANYL
     Indication: Induction of anaesthesia
     Route: 065
  8. SEVOFLURANE [Concomitant]
     Active Substance: SEVOFLURANE
     Indication: Maintenance of anaesthesia
     Route: 065
  9. ROPIVACAINE [Concomitant]
     Active Substance: ROPIVACAINE
     Indication: Nerve block
     Route: 065

REACTIONS (1)
  - Neuromuscular block prolonged [None]
